FAERS Safety Report 5280887-3 (Version None)
Quarter: 2007Q1

REPORT INFORMATION
  Report Type: 
  Country: None (occurrence: None)
  Receive Date: 20061229
  Receipt Date: 20060706
  Transmission Date: 20070707
  Serious: Yes (Other)
  Sender: FDA-Public Use
  Company Number: 2006UW13960

PATIENT
  Age: 70 Year
  Sex: Female
  Weight: 50.802 kg

DRUGS (14)
  1. CRESTOR [Suspect]
     Indication: BLOOD CHOLESTEROL INCREASED
     Dosage: 5 MG PO
     Route: 048
     Dates: start: 20060501
  2. OXYGEN [Concomitant]
  3. THYROID TAB [Concomitant]
  4. MAXZIDE [Concomitant]
  5. XANAX [Concomitant]
  6. SPIRIVA [Concomitant]
  7. ADVAIR DISKUS 100/50 [Concomitant]
  8. VITAMIN D [Concomitant]
  9. VITAMIN CAP [Concomitant]
  10. VENTOLIN [Concomitant]
  11. GARLIC [Concomitant]
  12. ASCORBIC ACID [Concomitant]
  13. CHARCOAL [Concomitant]
  14. FOSAMAX [Concomitant]

REACTIONS (1)
  - ALOPECIA [None]
